FAERS Safety Report 8310490-X (Version None)
Quarter: 2012Q2

REPORT INFORMATION
  Report Type: 
  Country: None (occurrence: None)
  Receive Date: 20120425
  Receipt Date: 20120410
  Transmission Date: 20120825
  Serious: Yes (Other)
  Sender: FDA-Public Use
  Company Number: SE-ROCHE-1058371

PATIENT
  Age: 2 Year
  Sex: Female

DRUGS (2)
  1. VALPROATE SODIUM [Suspect]
     Indication: EPILEPSY
     Route: 048
     Dates: end: 20100417
  2. CLONAZEPAM [Suspect]
     Indication: EPILEPSY
     Dosage: 2.5 MG/ML
     Route: 048
     Dates: end: 20100417

REACTIONS (1)
  - CONGENITAL FOOT MALFORMATION [None]
